FAERS Safety Report 10208814 (Version 1)
Quarter: 2014Q2

REPORT INFORMATION
  Report Type: Spontaneous
  Country: GB (occurrence: GB)
  Receive Date: 20140530
  Receipt Date: 20140530
  Transmission Date: 20141212
  Serious: Yes (Other)
  Sender: FDA-Public Use
  Company Number: GB-TAKEDA-2014TUS004323

PATIENT
  Age: 70 Year
  Sex: Male
  Weight: 95 kg

DRUGS (11)
  1. ADENURIC [Suspect]
     Indication: GOUTY TOPHUS
     Dosage: 80 MG, QD
     Route: 048
     Dates: start: 20140121, end: 20140324
  2. COLCHICINE [Concomitant]
     Dosage: 500 IU, QD
     Route: 048
  3. LANSOPRAZOLE [Concomitant]
     Dosage: 15 MG, QD
  4. AZATHIOPRINE [Concomitant]
     Dosage: 100 MG, QD
     Route: 048
     Dates: end: 20140325
  5. BISOPROLOL [Concomitant]
     Dosage: 10 MG, QD
     Route: 048
  6. DIGOXIN [Concomitant]
     Dosage: 62.5 ?G, QD
  7. DILTIAZEM [Concomitant]
     Dosage: 120 MG, UNK
     Route: 048
  8. DOXAZOSIN [Concomitant]
     Dosage: 4 MG, QD
  9. LISINOPRIL [Concomitant]
     Dosage: 20 MG, QD
  10. PREDNISOLONE [Concomitant]
     Dosage: 5 MG, QD
  11. WARFARIN [Concomitant]

REACTIONS (6)
  - Neck pain [Unknown]
  - Bone marrow failure [Recovering/Resolving]
  - Anaemia [Unknown]
  - Back pain [Unknown]
  - Haemoglobin decreased [Recovering/Resolving]
  - Fatigue [Unknown]
